FAERS Safety Report 18927766 (Version 2)
Quarter: 2021Q2

REPORT INFORMATION
  Report Type: Spontaneous
  Country: DE (occurrence: DE)
  Receive Date: 20210223
  Receipt Date: 20210604
  Transmission Date: 20210717
  Serious: Yes (Other)
  Sender: FDA-Public Use
  Company Number: DE-BAYER-2021-064506

PATIENT
  Age: 50 Year
  Sex: Male
  Weight: 63 kg

DRUGS (1)
  1. AVALOX [Suspect]
     Active Substance: MOXIFLOXACIN HYDROCHLORIDE
     Indication: DISSEMINATED TUBERCULOSIS
     Route: 048
     Dates: start: 2020

REACTIONS (4)
  - Ototoxicity [Unknown]
  - Product use in unapproved indication [None]
  - Off label use [None]
  - Tubulointerstitial nephritis [Unknown]

NARRATIVE: CASE EVENT DATE: 2020
